FAERS Safety Report 8594775-8 (Version None)
Quarter: 2012Q3

REPORT INFORMATION
  Report Type: 
  Country: None (occurrence: None)
  Receive Date: 20120815
  Receipt Date: 20120808
  Transmission Date: 20120928
  Serious: Yes (Other)
  Sender: FDA-Public Use
  Company Number: US-SHIRE-ALL1-2012-03788

PATIENT
  Sex: Male
  Weight: 103.86 kg

DRUGS (5)
  1. VYVANSE [Suspect]
     Indication: ATTENTION DEFICIT/HYPERACTIVITY DISORDER
     Dosage: UNK UNK, 1X/DAY:QD
     Route: 048
     Dates: start: 20110101
  2. FLUTICASONE PROPIONATE [Concomitant]
     Indication: ASTHMA
     Dosage: 500 ?G, 2X/DAY:BID (500MCG / 50MCG AEROSOL ONE PUFF TWICE DAILY)
     Route: 055
     Dates: start: 20090101
  3. VENTOLIN [Concomitant]
     Indication: ASTHMA
     Dosage: 90 ?G, AS REQ'D (2 PUFFS AS NEEDED)
     Route: 055
     Dates: start: 20000101
  4. VYVANSE [Suspect]
     Dosage: 50 MG, 1X/DAY:QD
     Route: 048
     Dates: end: 20120726
  5. XANAX [Concomitant]
     Indication: ANXIETY
     Dosage: 1 MG, 3X/DAY:TID
     Route: 048
     Dates: start: 20110101

REACTIONS (11)
  - PSYCHOTIC DISORDER [None]
  - FEELING ABNORMAL [None]
  - ABNORMAL LOSS OF WEIGHT [None]
  - IMPRISONMENT [None]
  - ANXIETY [None]
  - VIOLENCE-RELATED SYMPTOM [None]
  - PHYSICAL ASSAULT [None]
  - IRRITABILITY [None]
  - SUICIDAL IDEATION [None]
  - DISTURBANCE IN ATTENTION [None]
  - AGGRESSION [None]
